APPROVED DRUG PRODUCT: CIPROFLOXACIN IN DEXTROSE 5% IN PLASTIC CONTAINER
Active Ingredient: CIPROFLOXACIN
Strength: 200MG/100ML
Dosage Form/Route: INJECTABLE;INJECTION
Application: A078252 | Product #001 | TE Code: AP
Applicant: INFORLIFE SA
Approved: Mar 18, 2008 | RLD: No | RS: No | Type: RX